FAERS Safety Report 6237329-0 (Version None)
Quarter: 2009Q2

REPORT INFORMATION
  Report Type: 
  Country: None (occurrence: None)
  Receive Date: 20090619
  Receipt Date: 20090612
  Transmission Date: 20091009
  Serious: Yes (Hospitalization)
  Sender: FDA-Public Use
  Company Number: KR-ELI_LILLY_AND_COMPANY-KR200905005805

PATIENT
  Age: 49 Year
  Sex: Male

DRUGS (2)
  1. HUMALOG MIX 75/25 [Suspect]
     Indication: TYPE 2 DIABETES MELLITUS
     Dosage: 84 IU, DAILY (1/D)
     Route: 058
     Dates: start: 20090413, end: 20090101
  2. HUMALOG MIX 75/25 [Suspect]
     Dosage: 75 IU, DAILY (1/D)
     Route: 058
     Dates: start: 20090101

REACTIONS (1)
  - PYREXIA [None]
